FAERS Safety Report 16317409 (Version 1)
Quarter: 2019Q2

REPORT INFORMATION
  Report Type: Spontaneous
  Country: ES (occurrence: ES)
  Receive Date: 20190516
  Receipt Date: 20190516
  Transmission Date: 20190711
  Serious: Yes (Other)
  Sender: FDA-Public Use
  Company Number: ES-SUN PHARMACEUTICAL INDUSTRIES LTD-2019RR-207876

PATIENT
  Age: 54 Year
  Sex: Male
  Weight: 62 kg

DRUGS (5)
  1. SERTRALINA NORMON 100 MG COMPRIMIDOS RECUBIERTOS CON PELICULA EFG ,... [Concomitant]
     Indication: DEPRESSION
     Dosage: 100 MG DIARIOS
     Route: 048
     Dates: start: 20070401
  2. GABAPENTIN. [Suspect]
     Active Substance: GABAPENTIN
     Indication: PRODUCT USED FOR UNKNOWN INDICATION
     Dosage: 300 MG DIARIOS
     Route: 048
     Dates: start: 20170403
  3. ATENOLOL NORMON 50 MG COMPRIMIDOS RECUBIERTOS EFG , 30 COMPRIMIDOS [Concomitant]
     Indication: HYPERTENSION
     Dosage: 50MG DIARIOS
     Route: 048
     Dates: start: 20000101
  4. ELONTRIL 300 MG COMPRIMIDOS DE LIBERACION MODIFICADA , 30 COMPRIMIDOS [Concomitant]
     Indication: DEPRESSION
     Dosage: 300 MG DIARIOS
     Route: 048
     Dates: start: 20140801
  5. HIDROCLOROTIAZIDA APOTEX 25 MG COMPRIMIDOS EFG , 20 COMPRIMIDOS [Concomitant]
     Indication: HYPERTENSION
     Dosage: 12.5 MG DIARIOS
     Route: 048
     Dates: start: 20120101

REACTIONS (2)
  - Urinary incontinence [Unknown]
  - Erectile dysfunction [Unknown]

NARRATIVE: CASE EVENT DATE: 20170417
